FAERS Safety Report 17722931 (Version 1)
Quarter: 2020Q2

REPORT INFORMATION
  Report Type: Spontaneous
  Country: US (occurrence: US)
  Receive Date: 20200428
  Receipt Date: 20200428
  Transmission Date: 20200714
  Serious: Yes (Death)
  Sender: FDA-Public Use
  Company Number: None

PATIENT
  Sex: Female

DRUGS (7)
  1. COREG 6.25MG [Concomitant]
  2. LIPITOR [Concomitant]
     Active Substance: ATORVASTATIN CALCIUM
  3. NIFEDIPINE 90MG ER [Concomitant]
  4. RAYALDEE [Suspect]
     Active Substance: CALCIFEDIOL
     Indication: VITAMIN D DEFICIENCY
     Route: 048
     Dates: start: 20190211, end: 20200311
  5. HYDRALAZINE 100MG [Concomitant]
     Active Substance: HYDRALAZINE HYDROCHLORIDE
  6. LEVEMIR FLEX TOUCH PEN [Concomitant]
  7. LASIX 40MG [Concomitant]

REACTIONS (1)
  - Death [None]
